FAERS Safety Report 5243920-0 (Version None)
Quarter: 2007Q1

REPORT INFORMATION
  Report Type: 
  Country: None (occurrence: None)
  Receive Date: 20070222
  Receipt Date: 20070212
  Transmission Date: 20070707
  Serious: Yes (Other)
  Sender: FDA-Public Use
  Company Number: PHNU2007DE00514

PATIENT
  Age: 68 Year
  Sex: Female
  Weight: 59.5 kg

DRUGS (4)
  1. REMINYL [Suspect]
     Indication: DEMENTIA ALZHEIMER'S TYPE
     Dosage: 8 TO16 MG DAILY
     Route: 048
     Dates: start: 20060922, end: 20061130
  2. LAIF [Concomitant]
     Indication: DEPRESSION
     Dosage: 900 MG/DAY
     Route: 048
     Dates: end: 20061012
  3. ACETYLSALICYLIC ACID SRT [Concomitant]
     Indication: MACROANGIOPATHY
     Dosage: 100 MG, QD
     Route: 048
  4. EXELON [Suspect]
     Dosage: 3 MG/DAY
     Route: 048

REACTIONS (1)
  - ELECTROCARDIOGRAM QT PROLONGED [None]
